FAERS Safety Report 14471574 (Version 1)
Quarter: 2018Q1

REPORT INFORMATION
  Report Type: Spontaneous
  Country: CA (occurrence: CA)
  Receive Date: 20180131
  Receipt Date: 20180131
  Transmission Date: 20180509
  Serious: Yes (Other)
  Sender: FDA-Public Use
  Company Number: CA-PFIZER INC-2018030446

PATIENT
  Sex: Male
  Weight: 10 kg

DRUGS (1)
  1. ROCURONIUM BROMIDE. [Suspect]
     Active Substance: ROCURONIUM BROMIDE
     Dosage: 3 PUSH, 11 MG WITH 15 MINUTES INTERVALS

REACTIONS (4)
  - Hypothermia [Unknown]
  - Electrolyte imbalance [Unknown]
  - Respiratory arrest [Unknown]
  - Cardiac arrest [Unknown]
